FAERS Safety Report 9906209 (Version 1)
Quarter: 2014Q1

REPORT INFORMATION
  Report Type: Spontaneous
  Country: JP (occurrence: JP)
  Receive Date: 20140218
  Receipt Date: 20140218
  Transmission Date: 20141002
  Serious: Yes (Hospitalization)
  Sender: FDA-Public Use
  Company Number: JP-SA-2014SA016090

PATIENT
  Sex: 0

DRUGS (1)
  1. ONETAXOTERE [Suspect]
     Indication: LUNG NEOPLASM MALIGNANT
     Route: 042

REACTIONS (1)
  - Pulmonary alveolar haemorrhage [Not Recovered/Not Resolved]
